FAERS Safety Report 5064864-3 (Version None)
Quarter: 2006Q3

REPORT INFORMATION
  Report Type: 
  Country: None (occurrence: None)
  Receive Date: 20060728
  Receipt Date: 20050624
  Transmission Date: 20061208
  Serious: Yes (Other)
  Sender: FDA-Public Use
  Company Number: JP-NOVOPROD-245412

PATIENT
  Age: 10 Year
  Sex: Female
  Weight: 32 kg

DRUGS (2)
  1. NORDITROPIN SIMPLEXX [Suspect]
     Indication: GROWTH HORMONE DEFICIENCY
     Dosage: 2.4 - 6.3 MG PER WEEK
     Dates: start: 20001016, end: 20050519
  2. LEUPLIN [Concomitant]
     Indication: PRECOCIOUS PUBERTY
     Dosage: 0.5 - 0.7 MG
     Route: 058
     Dates: start: 20040415, end: 20050519

REACTIONS (1)
  - DIABETES MELLITUS [None]
